FAERS Safety Report 6417625-4 (Version None)
Quarter: 2009Q4

REPORT INFORMATION
  Report Type: 
  Country: None (occurrence: None)
  Receive Date: 20091026
  Receipt Date: 20091013
  Transmission Date: 20100525
  Serious: Yes (Hospitalization, Other)
  Sender: FDA-Public Use
  Company Number: ADR37482009

PATIENT
  Age: 56 Year
  Sex: Male

DRUGS (5)
  1. SIMVASTATIN [Suspect]
     Indication: PROPHYLAXIS
     Dosage: 20 MG, 1/1 DAYS, ORAL
     Route: 048
     Dates: start: 20071011, end: 20071110
  2. AMIODIPINE (10 MG) [Concomitant]
  3. ASPIRIN [Concomitant]
  4. FUROSEMIDE [Concomitant]
  5. LOSARTAN (100 MG) [Concomitant]

REACTIONS (3)
  - CHEST PAIN [None]
  - PAIN IN EXTREMITY [None]
  - RHABDOMYOLYSIS [None]
